FAERS Safety Report 9672362 (Version 2)
Quarter: 2013Q4

REPORT INFORMATION
  Report Type: Report from Study
  Country: DE (occurrence: DE)
  Receive Date: 20131106
  Receipt Date: 20131106
  Transmission Date: 20140711
  Serious: Yes (Death, Other)
  Sender: FDA-Public Use
  Company Number: DE-PFIZER INC-2013213390

PATIENT
  Age: 72 Year
  Sex: Male
  Weight: 107 kg

DRUGS (17)
  1. SOMAVERT [Suspect]
     Indication: ACROMEGALY
     Dosage: 20 MG, 7 INJECTIONS/WEEK
     Dates: start: 20051117
  2. CA-VITAMIN D [Concomitant]
     Dosage: UNK
     Dates: start: 20090309
  3. CA-VITAMIN D [Concomitant]
     Dosage: UNK
     Dates: start: 20100310
  4. GELOMYRTOL [Concomitant]
     Indication: RESPIRATORY DISORDER
     Dosage: UNK
     Dates: start: 20090309
  5. GELOMYRTOL [Concomitant]
     Dosage: UNK
     Dates: start: 20100310
  6. ATACAND [Concomitant]
     Indication: HYPERTENSION
     Dosage: UNK
     Dates: start: 20080305
  7. ATACAND [Concomitant]
     Dosage: UNK
     Dates: start: 20090309
  8. ATACAND [Concomitant]
     Dosage: UNK
     Dates: start: 20100310
  9. CARDULAR PP [Concomitant]
     Indication: CEREBROVASCULAR DISORDER
     Dosage: UNK
     Dates: start: 20071016
  10. CARDULAR PP [Concomitant]
     Indication: HYPERTENSION
     Dosage: UNK
     Dates: start: 20080305
  11. NEBIDO [Concomitant]
     Indication: BLOOD FOLLICLE STIMULATING HORMONE DECREASED
     Dosage: UNK
     Dates: start: 20071016
  12. NEBIDO [Concomitant]
     Indication: BLOOD LUTEINISING HORMONE DECREASED
     Dosage: UNK
     Dates: start: 20080305
  13. HYDROCORTISONE [Concomitant]
     Indication: ADRENOCORTICOTROPIC HORMONE DEFICIENCY
     Dosage: UNK
     Dates: start: 20071016
  14. HYDROCORTISONE [Concomitant]
     Dosage: UNK
     Dates: start: 20080305
  15. ALLOPURINOL [Concomitant]
     Dosage: UNK
     Dates: start: 20071016
  16. ATACAND PLUS [Concomitant]
     Indication: HYPERTENSION
     Dosage: UNK
     Dates: start: 20071016
  17. OCTREOTIDE LAR [Concomitant]
     Dosage: UNK
     Dates: start: 199912, end: 200504

REACTIONS (2)
  - Neoplasm malignant [Not Recovered/Not Resolved]
  - Sudden cardiac death [Fatal]
